FAERS Safety Report 11211135 (Version 3)
Quarter: 2015Q3

REPORT INFORMATION
  Report Type: Spontaneous
  Country: US (occurrence: US)
  Receive Date: 20150623
  Receipt Date: 20150804
  Transmission Date: 20151125
  Serious: No
  Sender: FDA-Public Use
  Company Number: US-ASTRAZENECA-2015SE60660

PATIENT
  Age: 64 Year
  Sex: Female
  Weight: 74.8 kg

DRUGS (4)
  1. ZAFIRLUKAST. [Suspect]
     Active Substance: ZAFIRLUKAST
     Indication: ASTHMA
     Route: 048
     Dates: start: 20150527
  2. PULMICORT FLEXHALER [Suspect]
     Active Substance: BUDESONIDE
     Indication: ASTHMA
     Dosage: 180 MCG TWO PUFFS TWICE DAILY
     Route: 055
     Dates: start: 20150527
  3. PULMICORT FLEXHALER [Suspect]
     Active Substance: BUDESONIDE
     Indication: ASTHMA
     Dosage: 180 MCG TWO PUFFS TWICE DAILY
     Route: 055
     Dates: start: 20150527
  4. ZAFIRLUKAST. [Suspect]
     Active Substance: ZAFIRLUKAST
     Indication: ASTHMA
     Route: 048
     Dates: start: 20150527

REACTIONS (2)
  - Product quality issue [Recovered/Resolved]
  - Dyspnoea [Unknown]
